FAERS Safety Report 7001221-4 (Version None)
Quarter: 2010Q3

REPORT INFORMATION
  Report Type: 
  Country: None (occurrence: None)
  Receive Date: 20100920
  Receipt Date: 20070618
  Transmission Date: 20110219
  Serious: Yes (Other)
  Sender: FDA-Public Use
  Company Number: US-ASTRAZENECA-2006UW25653

PATIENT
  Age: 17144 Day
  Sex: Male
  Weight: 101.6 kg

DRUGS (12)
  1. SEROQUEL [Suspect]
     Route: 048
     Dates: start: 19970101
  2. SEROQUEL [Suspect]
     Dosage: 25-100 MG
     Route: 048
     Dates: start: 19990602
  3. SEROQUEL [Suspect]
     Route: 048
     Dates: end: 20010101
  4. HALDOL [Concomitant]
     Dates: start: 19920101
  5. THORAZINE [Concomitant]
     Dates: start: 19980101
  6. TRILAFON [Concomitant]
  7. LOZAR [Concomitant]
     Route: 048
     Dates: start: 20061115
  8. TRAMADOL [Concomitant]
     Indication: PAIN
     Route: 048
     Dates: start: 20050405
  9. MORPHINE [Concomitant]
     Indication: PAIN
     Dosage: 6 MG IV PRN
     Dates: start: 20050405
  10. ATIVAN [Concomitant]
     Dosage: 2-4 MG IV PRN Q2-4H
     Dates: start: 20040502
  11. VICODIN [Concomitant]
     Indication: PAIN
     Dosage: 5/500 PRN
     Dates: start: 20031024
  12. PHENERGAN [Concomitant]
     Dosage: 12.5-25 MG IV Q6H PRN
     Dates: start: 20031024

REACTIONS (4)
  - DIABETES MELLITUS [None]
  - DIABETES MELLITUS INADEQUATE CONTROL [None]
  - TYPE 1 DIABETES MELLITUS [None]
  - TYPE 2 DIABETES MELLITUS [None]
